FAERS Safety Report 9156958 (Version 1)
Quarter: 2013Q1

REPORT INFORMATION
  Report Type: Spontaneous
  Country: US (occurrence: US)
  Receive Date: 20130312
  Receipt Date: 20130312
  Transmission Date: 20140127
  Serious: Yes (Other)
  Sender: FDA-Public Use
  Company Number: US-BAYER-2013-028633

PATIENT
  Age: 42 Year
  Sex: Female
  Weight: 63.49 kg

DRUGS (37)
  1. YAZ [Suspect]
  2. LORATADINE [Concomitant]
     Dosage: 10 MG, UNK
     Route: 048
  3. BELLADONNA ALKALOIDS [Concomitant]
     Dosage: ONE TABLET, FOUR TIMES DAILY AS NEEDED
     Route: 048
  4. IBUPROFEN [Concomitant]
     Dosage: 800 MG, UNK
     Route: 048
  5. BUTALBITAL, ACETAMINOPHEN + CAFFEINE [Concomitant]
     Dosage: 1 TABLET FOUR TIMES DAILY AS NEEDED
     Route: 048
  6. SYMBICORT [Concomitant]
     Dosage: 2 PUFFS DAILY
  7. MORPHINE [Concomitant]
     Dosage: 30 MG, BID
     Route: 048
  8. ACETAMINOPHEN + COD. PHOSP. [Concomitant]
     Dosage: 1 TABLET TWICE DAILY
     Route: 048
  9. CROMOLYN [Concomitant]
     Dosage: INSTILL ONE DROP BOTH EYES FOUR TIMES DAILY
     Route: 061
  10. FLUTICASONE [Concomitant]
     Dosage: SPRAY TWICE EACH NOSTRIL DAILY
     Route: 061
  11. TERCONAZOLE [Concomitant]
     Dosage: 0.4%
     Route: 061
  12. BUPROPION [Concomitant]
     Dosage: 150 MG, 1 TABLET DAILY
     Route: 048
  13. POTASSIUM CHLORIDE [Concomitant]
     Dosage: 20 MEQ, QD
     Route: 048
  14. GABAPENTIN [Concomitant]
     Dosage: 1 CAPSULE THREE TIMES DAILY
     Route: 048
  15. METOPROLOL TARTRATE [Concomitant]
     Dosage: 50 MG, TAKE 1/2 TABLET DAILY
     Route: 048
  16. LYRICA [Concomitant]
     Dosage: 50 MG, BID
     Route: 048
  17. AMITRIPTYLINE [Concomitant]
     Dosage: 150 MG, ONE TABLET EVERY NIGHT
     Route: 048
  18. FUROSEMIDE [Concomitant]
     Dosage: 40 MG, QD
     Route: 048
  19. NITROFURANTOIN [Concomitant]
     Dosage: 100 MG, BID
     Route: 048
  20. SINGULAIR [Concomitant]
     Dosage: ONE TABLET DAILY
     Route: 048
  21. PROMETHAZINE [CITRIC AC,CODEINE PHOS,PROMETHAZ HCL,NA+ CITR AC,SUL [Concomitant]
     Dosage: 1 TEASPOON EVERY 12 HOURS
     Route: 048
  22. LOPERAMIDE [Concomitant]
     Dosage: 20 MG, BID
     Route: 048
  23. PROVENTIL [Concomitant]
     Dosage: 2 PUFFS EVERY 4 HOURS AS NEEDED
     Route: 045
  24. MECLIZINE [Concomitant]
     Dosage: 25 MG, PRN
     Route: 048
  25. ZOFRAN [Concomitant]
     Dosage: 4 MG
     Route: 042
  26. AMBIEN [Concomitant]
     Dosage: 5 MG, HS
     Route: 048
  27. MIRALAX [Concomitant]
     Dosage: 12 GM DAILY
     Route: 048
  28. FERROUS SULFATE [Concomitant]
     Dosage: 325 MG, BID
     Route: 048
  29. LEVOFLOXACIN [Concomitant]
     Dosage: 750 MG, 1 DAILY FOR 3 DAYS
     Route: 048
  30. DOCUSATE SODIUM [Concomitant]
     Dosage: ONE CAPSULE THREE TIMES DAILY
     Route: 048
  31. MELOXICAM [Concomitant]
     Dosage: 15 MG ONE TABLET DAILY
     Route: 048
  32. CIPROFLOXACIN [Concomitant]
     Dosage: 500 MG, TID
     Route: 048
  33. CEPHALEXIN [Concomitant]
     Dosage: 500 MG, 1 CAPSULE FOR TIMES DAILY
     Route: 048
  34. ASPIRIN [Concomitant]
     Indication: PROPHYLAXIS
     Dosage: 325 MG, DAILY
  35. TYLENOL WITH CODEIN #3 [Concomitant]
  36. ENOXAPARIN [Concomitant]
  37. TORADOL [Concomitant]

REACTIONS (1)
  - Deep vein thrombosis [Recovered/Resolved]
